FAERS Safety Report 5970387-7 (Version None)
Quarter: 2008Q4

REPORT INFORMATION
  Report Type: 
  Country: None (occurrence: None)
  Receive Date: 20081126
  Receipt Date: 20081021
  Transmission Date: 20090506
  Serious: No
  Sender: FDA-Public Use
  Company Number: US-ABBOTT-08P-163-0483217-00

PATIENT
  Sex: Male

DRUGS (2)
  1. SIMCOR [Suspect]
     Indication: DRUG USE FOR UNKNOWN INDICATION
  2. FENOFIBRATE [Concomitant]
     Indication: BLOOD CHOLESTEROL ABNORMAL

REACTIONS (5)
  - BACK PAIN [None]
  - IMMOBILE [None]
  - INFLUENZA LIKE ILLNESS [None]
  - PAIN [None]
  - PRURITUS [None]
